FAERS Safety Report 24974389 (Version 2)
Quarter: 2025Q2

REPORT INFORMATION
  Report Type: Report from Study
  Country: PK (occurrence: PK)
  Receive Date: 20250217
  Receipt Date: 20250407
  Transmission Date: 20250717
  Serious: Yes (Death)
  Sender: ROCHE
  Company Number: PK-ROCHE-10000208266

PATIENT
  Age: 63 Year
  Sex: Female

DRUGS (1)
  1. AVASTIN [Suspect]
     Active Substance: BEVACIZUMAB
     Indication: Ovarian cancer
     Route: 042
     Dates: start: 20241029, end: 20241115

REACTIONS (1)
  - Platelet count decreased [Fatal]
